FAERS Safety Report 8535596 (Version 2)
Quarter: 2012Q4

REPORT INFORMATION
  Report Type: 
  Country: US (occurrence: US)
  Receive Date: 20120430
  Receipt Date: 20121107
  Transmission Date: 20130627
  Serious: Yes (Other)
  Sender: FDA-Public Use
  Company Number: US-BAYER-2012-040740

PATIENT
  Age: 18 Year
  Sex: Female
  Weight: 61.22 kg

DRUGS (4)
  1. OCELLA [Suspect]
     Dosage: UNK
     Dates: start: 200909, end: 201108
  2. PROAIR INHALER [Concomitant]
     Dosage: Inhalation
     Route: 045
     Dates: start: 20100210
  3. ADVAIR DISKUS [Concomitant]
     Dosage: UNK
     Route: 045
     Dates: start: 20100210
  4. FAMOTIDINE [Concomitant]
     Dosage: 20 mg, UNK
     Route: 048
     Dates: start: 20100102

REACTIONS (4)
  - Thrombosis [None]
  - Emotional distress [None]
  - Injury [None]
  - Pain [None]
